FAERS Safety Report 4972133-2 (Version None)
Quarter: 2006Q2

REPORT INFORMATION
  Report Type: 
  Country: None (occurrence: None)
  Receive Date: 20060412
  Receipt Date: 20060412
  Transmission Date: 20061013
  Serious: Yes (Other)
  Sender: FDA-Public Use
  Company Number: None

PATIENT
  Sex: Female
  Weight: 50.8029 kg

DRUGS (2)
  1. ZOVIA 1/35E-21 [Suspect]
     Indication: CONTRACEPTION
  2. ZOVIA 1/35E-21 [Suspect]
     Indication: MENORRHAGIA

REACTIONS (1)
  - METRORRHAGIA [None]
